FAERS Safety Report 9986078 (Version 1)
Quarter: 2014Q1

REPORT INFORMATION
  Report Type: Report from Study
  Country: US (occurrence: US)
  Receive Date: 20140307
  Receipt Date: 20140307
  Transmission Date: 20141002
  Serious: No
  Sender: FDA-Public Use
  Company Number: US-ABBVIE-13P-163-1090296-00

PATIENT
  Age: 64 Year
  Sex: Female

DRUGS (8)
  1. HUMIRA [Suspect]
     Indication: COLITIS ULCERATIVE
     Dates: start: 20130509, end: 20130509
  2. HUMIRA [Suspect]
     Route: 058
     Dates: start: 20130524, end: 20130524
  3. HUMIRA [Suspect]
     Route: 058
  4. LIALDA [Concomitant]
     Indication: COLITIS ULCERATIVE
     Dosage: 1.2 GM TWICE DAILY
  5. AZATHIOPRINE [Concomitant]
     Indication: COLITIS ULCERATIVE
     Dosage: 50 MG THREE TABS
  6. OVER THE COUNTER IRON [Concomitant]
     Indication: PRODUCT USED FOR UNKNOWN INDICATION
     Dosage: ONE IN AM AND ONE IN PM
  7. UNKNOWN MEDICATION [Concomitant]
     Indication: ANAEMIA
     Dosage: ONE IN AM AND ONE IN PM
  8. FIBERCON [Concomitant]
     Indication: PRODUCT USED FOR UNKNOWN INDICATION
     Dosage: ONE IN AM AND ONE IN PM

REACTIONS (3)
  - Injection site pain [Recovered/Resolved]
  - Injection site haemorrhage [Recovered/Resolved]
  - Injection site haemorrhage [Recovered/Resolved]
